FAERS Safety Report 5741333-6 (Version None)
Quarter: 2008Q2

REPORT INFORMATION
  Report Type: 
  Country: None (occurrence: None)
  Receive Date: 20080515
  Receipt Date: 20080506
  Transmission Date: 20081010
  Serious: Yes (Other)
  Sender: FDA-Public Use
  Company Number: 2008BI001048

PATIENT
  Age: 49 Year
  Sex: Female

DRUGS (2)
  1. AVONEX [Suspect]
     Indication: MULTIPLE SCLEROSIS
     Dosage: 30 UG; QW; IM
     Route: 030
     Dates: start: 20060728, end: 20070818
  2. METHOTREXATE [Concomitant]

REACTIONS (4)
  - HEPATIC ENZYME INCREASED [None]
  - INJECTION SITE REACTION [None]
  - SQUAMOUS CELL CARCINOMA [None]
  - WHITE BLOOD CELL COUNT DECREASED [None]
